FAERS Safety Report 5585922-0 (Version None)
Quarter: 2008Q1

REPORT INFORMATION
  Report Type: 
  Country: None (occurrence: None)
  Receive Date: 20080109
  Receipt Date: 20071214
  Transmission Date: 20080703
  Serious: No
  Sender: FDA-Public Use
  Company Number: US-BOEHRINGER INGELHEIM PHARMACEUTICALS, INC.-2007-BP-26214BP

PATIENT
  Age: 77 Year
  Sex: Male

DRUGS (4)
  1. FLOMAX [Suspect]
     Indication: BLADDER DISORDER
     Route: 048
     Dates: start: 20060101
  2. SINGULAIR [Concomitant]
     Indication: ASTHMA
  3. ADVAIR DISKUS 100/50 [Concomitant]
     Indication: ASTHMA
  4. KEPPRA [Concomitant]

REACTIONS (2)
  - CATARACT [None]
  - FLOPPY IRIS SYNDROME [None]
